FAERS Safety Report 6443867-8 (Version None)
Quarter: 2009Q4

REPORT INFORMATION
  Report Type: 
  Country: None (occurrence: None)
  Receive Date: 20091113
  Receipt Date: 20091028
  Transmission Date: 20100525
  Serious: Yes (Hospitalization)
  Sender: FDA-Public Use
  Company Number: 427876

PATIENT
  Age: 11 Year
  Sex: Female
  Weight: 22 kg

DRUGS (6)
  1. PROPOFOL [Suspect]
     Indication: DRUG USE FOR UNKNOWN INDICATION
  2. BACLOFEN [Concomitant]
  3. CLONAZEPAM [Concomitant]
  4. (CODEINE) [Concomitant]
  5. HYDROMORPHONE HCL [Concomitant]
  6. ULTIVA [Concomitant]

REACTIONS (2)
  - COMA SCALE ABNORMAL [None]
  - DEPRESSED LEVEL OF CONSCIOUSNESS [None]
